FAERS Safety Report 9495880 (Version 3)
Quarter: 2013Q4

REPORT INFORMATION
  Report Type: Report from Study
  Country: ES (occurrence: ES)
  Receive Date: 20130903
  Receipt Date: 20131016
  Transmission Date: 20140711
  Serious: Yes (Other)
  Sender: FDA-Public Use
  Company Number: ES-GILEAD-2013-0076470

PATIENT
  Age: 50 Year
  Sex: Male

DRUGS (1)
  1. EMTRICITABINE/RILPIVIRINE/TENOFOVIR DF [Suspect]
     Indication: HIV INFECTION
     Dosage: UNK
     Dates: start: 20130516, end: 20130918

REACTIONS (3)
  - Viral mutation identified [Unknown]
  - Drug ineffective [Unknown]
  - Viral load [Unknown]
